FAERS Safety Report 4477860-1 (Version None)
Quarter: 2004Q4

REPORT INFORMATION
  Report Type: 
  Country: None (occurrence: None)
  Receive Date: 20041014
  Receipt Date: 20041006
  Transmission Date: 20050328
  Serious: Yes (Congenital Anomaly)
  Sender: FDA-Public Use
  Company Number: CIP04002165

PATIENT
  Sex: Male

DRUGS (1)
  1. MACRODANTIN [Suspect]
     Indication: URINARY TRACT INFECTION
     Dosage: 100 MG, ORAL
     Route: 048

REACTIONS (5)
  - CEREBRAL PALSY [None]
  - DEVELOPMENTAL DELAY [None]
  - JAUNDICE [None]
  - JAUNDICE NEONATAL [None]
  - MATERNAL DRUGS AFFECTING FOETUS [None]
